FAERS Safety Report 8610034 (Version 9)
Quarter: 2013Q3

REPORT INFORMATION
  Report Type: Spontaneous
  Country: US (occurrence: US)
  Receive Date: 20120612
  Receipt Date: 20130903
  Transmission Date: 20140515
  Serious: Yes (Hospitalization, Other)
  Sender: FDA-Public Use
  Company Number: US-SANOFI-AVENTIS-2011SA047966

PATIENT
  Age: 60 Year
  Sex: Male
  Weight: 106.59 kg

DRUGS (40)
  1. PLAVIX [Suspect]
     Indication: CATHETERISATION CARDIAC
     Route: 048
     Dates: start: 20090820, end: 20091201
  2. PLAVIX [Suspect]
     Indication: STENT PLACEMENT
     Route: 048
     Dates: start: 20090820, end: 20091201
  3. PLAVIX [Suspect]
     Indication: CATHETERISATION CARDIAC
     Route: 048
     Dates: start: 20091209, end: 20091214
  4. PLAVIX [Suspect]
     Indication: STENT PLACEMENT
     Route: 048
     Dates: start: 20091209, end: 20091214
  5. ASA [Suspect]
     Route: 048
     Dates: start: 20090820, end: 20091201
  6. ASA [Suspect]
     Route: 048
     Dates: start: 20091209, end: 20091214
  7. TRAMADOL [Concomitant]
     Indication: INSOMNIA
  8. DARVOCET-N [Concomitant]
     Indication: PAIN
     Dosage: Q4H
  9. CITALOPRAM [Concomitant]
  10. MILK OF MAGNESIA [Concomitant]
     Indication: CONSTIPATION
     Dosage: 30CC A DAY
     Route: 048
  11. TYLENOL [Concomitant]
  12. COLACE [Concomitant]
     Route: 048
  13. FLEXERIL [Concomitant]
     Route: 048
     Dates: start: 20080728
  14. LEVITRA [Concomitant]
     Dates: start: 20060401
  15. METOPROLOL [Concomitant]
     Route: 048
     Dates: start: 20080802
  16. HYZAAR [Concomitant]
     Indication: HYPERTENSION
     Dosage: HYZAAR 100-25 TABLET
     Route: 048
     Dates: start: 20080802
  17. ZETIA [Concomitant]
     Dates: start: 20080623
  18. OXAPROZIN [Concomitant]
     Dates: start: 20060401
  19. IBUPROFEN [Concomitant]
     Dates: start: 20060703
  20. IBUPROFEN [Concomitant]
     Dates: start: 20060906
  21. SIMVASTATIN [Concomitant]
     Indication: HYPERLIPIDAEMIA
     Dates: start: 20080802
  22. SIMVASTATIN [Concomitant]
     Indication: HYPERLIPIDAEMIA
     Route: 048
     Dates: start: 20080519
  23. HYDROXYCHLOROQUINE [Concomitant]
     Dates: start: 20061006
  24. UROXATRAL [Concomitant]
     Dates: start: 20080719
  25. VARENICLINE [Concomitant]
     Dates: start: 20070320
  26. TOPROL XL [Concomitant]
     Dates: start: 20070612
  27. DOXYCYCLINE HYCLATE [Concomitant]
     Dates: start: 20071001
  28. METOPROLOL SUCCINATE [Concomitant]
     Dates: start: 20071012
  29. NAPROXEN [Concomitant]
     Dates: start: 20080103
  30. PREDNISONE [Concomitant]
     Dates: start: 20090924
  31. ZOLPIDEM TARTRATE [Concomitant]
     Dates: start: 20090604
  32. GABAPENTIN [Concomitant]
     Dates: start: 20080206
  33. GLIPIZIDE [Concomitant]
     Dates: start: 20080424
  34. GLIPIZIDE [Concomitant]
     Route: 048
     Dates: start: 20080519
  35. LANTUS [Concomitant]
     Dosage: DOSE:30 UNIT(S)
  36. DIFLUNISAL [Concomitant]
     Dates: start: 20080721
  37. CIPROFLOXACIN HYDROCHLORIDE [Concomitant]
     Dates: start: 20080721
  38. ALL OTHER THERAPEUTIC PRODUCTS [Concomitant]
     Dates: start: 20090822
  39. ALTACE [Concomitant]
  40. MOTRAN [Concomitant]
     Indication: PAIN

REACTIONS (20)
  - Spinal column stenosis [Unknown]
  - Muscular weakness [Unknown]
  - Back pain [Unknown]
  - Gait disturbance [Unknown]
  - Atelectasis [Unknown]
  - Staphylococcal infection [Unknown]
  - Respiratory distress [Unknown]
  - Haemorrhagic stroke [Recovered/Resolved]
  - Coma [Recovered/Resolved]
  - Paraesthesia [Recovered/Resolved]
  - Quadriplegia [Recovered/Resolved]
  - Headache [Recovered/Resolved]
  - Epistaxis [Recovered/Resolved]
  - Cardiac flutter [Recovered/Resolved]
  - Dizziness [Recovered/Resolved]
  - Hypertension [Recovered/Resolved]
  - Dysphagia [Recovered/Resolved]
  - Haematuria [Unknown]
  - Leukocytosis [Unknown]
  - Tachypnoea [Unknown]
